FAERS Safety Report 9726088 (Version 3)
Quarter: 2014Q1

REPORT INFORMATION
  Report Type: Spontaneous
  Country: FR (occurrence: FR)
  Receive Date: 20131203
  Receipt Date: 20140108
  Transmission Date: 20141002
  Serious: Yes (Other)
  Sender: FDA-Public Use
  Company Number: FR-JNJFOC-20131117900

PATIENT
  Age: 66 Year
  Sex: Female

DRUGS (3)
  1. XARELTO [Suspect]
     Indication: EMBOLISM VENOUS
     Route: 048
     Dates: start: 20131105, end: 20131122
  2. XARELTO [Suspect]
     Indication: DEEP VEIN THROMBOSIS
     Route: 048
     Dates: start: 20131105, end: 20131122
  3. KLIOGEST [Concomitant]
     Indication: MENOPAUSE
     Route: 065

REACTIONS (3)
  - Deep vein thrombosis [Recovering/Resolving]
  - Treatment failure [Unknown]
  - Vascular pain [Unknown]
